FAERS Safety Report 17644830 (Version 1)
Quarter: 2020Q2

REPORT INFORMATION
  Report Type: Report from Study
  Country: GT (occurrence: GT)
  Receive Date: 20200408
  Receipt Date: 20200408
  Transmission Date: 20200713
  Serious: Yes (Other)
  Sender: FDA-Public Use
  Company Number: NVSC2020GT094747

PATIENT
  Age: 59 Year
  Sex: Male

DRUGS (2)
  1. VYMADA [Suspect]
     Active Substance: SACUBITRIL\VALSARTAN
     Dosage: 100 MG, UNKNOWN
     Route: 065
     Dates: start: 201911
  2. VYMADA [Suspect]
     Active Substance: SACUBITRIL\VALSARTAN
     Indication: PRODUCT USED FOR UNKNOWN INDICATION
     Dosage: 50 MG, UNKNOWN
     Route: 065

REACTIONS (6)
  - Drug ineffective [Unknown]
  - Memory impairment [Unknown]
  - Choking [Unknown]
  - Respiration abnormal [Unknown]
  - Cardiac disorder [Unknown]
  - Malaise [Unknown]
